FAERS Safety Report 9003865 (Version 1)
Quarter: 2013Q1

REPORT INFORMATION
  Report Type: Spontaneous
  Country: US (occurrence: US)
  Receive Date: 20130108
  Receipt Date: 20130108
  Transmission Date: 20140127
  Serious: No
  Sender: FDA-Public Use
  Company Number: US-GLAXOSMITHKLINE-A0998015A

PATIENT
  Age: 57 Year
  Sex: Male

DRUGS (2)
  1. LOVAZA [Suspect]
     Indication: BLOOD CHOLESTEROL INCREASED
     Dosage: 2CAP TWICE PER DAY
     Route: 048
     Dates: start: 20121005, end: 20121006
  2. CENTRUM SILVER [Concomitant]

REACTIONS (5)
  - Dysgeusia [Recovered/Resolved]
  - Frequent bowel movements [Unknown]
  - Faeces discoloured [Not Recovered/Not Resolved]
  - Diarrhoea [Unknown]
  - Product quality issue [Unknown]
